FAERS Safety Report 9963646 (Version 1)
Quarter: 2014Q1

REPORT INFORMATION
  Report Type: Report from Study
  Country: US (occurrence: US)
  Receive Date: 20140305
  Receipt Date: 20140305
  Transmission Date: 20141002
  Serious: No
  Sender: FDA-Public Use
  Company Number: US-ABBVIE-13P-163-1117359-00

PATIENT
  Age: 19 Year
  Sex: Male

DRUGS (3)
  1. HUMIRA [Suspect]
     Indication: CROHN^S DISEASE
     Dates: start: 20130412, end: 20130412
  2. HUMIRA [Suspect]
     Dates: start: 20130426, end: 20130426
  3. HUMIRA [Suspect]
     Dates: end: 20130621

REACTIONS (3)
  - Crohn^s disease [Not Recovered/Not Resolved]
  - Nausea [Not Recovered/Not Resolved]
  - Drug ineffective [Not Recovered/Not Resolved]
